FAERS Safety Report 19080273 (Version 2)
Quarter: 2021Q2

REPORT INFORMATION
  Report Type: Spontaneous
  Country: JP (occurrence: JP)
  Receive Date: 20210401
  Receipt Date: 20210401
  Transmission Date: 20210717
  Serious: Yes (Other)
  Sender: FDA-Public Use
  Company Number: JP-SA-2021SA104914

PATIENT
  Age: 78 Year
  Sex: Female

DRUGS (1)
  1. DUPIXENT [Suspect]
     Active Substance: DUPILUMAB
     Indication: DERMATITIS ATOPIC
     Dosage: UNK
     Route: 058

REACTIONS (4)
  - Eye pruritus [Recovering/Resolving]
  - Erythema of eyelid [Recovered/Resolved]
  - Noninfective conjunctivitis [Recovering/Resolving]
  - Vernal keratoconjunctivitis [Recovering/Resolving]
